FAERS Safety Report 7528585-7 (Version None)
Quarter: 2011Q2

REPORT INFORMATION
  Report Type: 
  Country: None (occurrence: None)
  Receive Date: 20110607
  Receipt Date: 20040331
  Transmission Date: 20111010
  Serious: Yes (Death)
  Sender: FDA-Public Use
  Company Number: PHNR2004AU00835

PATIENT
  Sex: Female

DRUGS (4)
  1. SERTRALINE HYDROCHLORIDE [Concomitant]
  2. GLICLAZIDE [Concomitant]
     Indication: DIABETES MELLITUS
  3. FERROUS SULFATE TAB [Concomitant]
  4. CLOZARIL [Suspect]
     Dosage: 12.5 - 500 MG/QD
     Dates: start: 20021119

REACTIONS (1)
  - CHOKING [None]
